FAERS Safety Report 6442033-X (Version None)
Quarter: 2009Q4

REPORT INFORMATION
  Report Type: 
  Country: None (occurrence: None)
  Receive Date: 20091116
  Receipt Date: 20091102
  Transmission Date: 20100525
  Serious: Yes (Life-Threatening, Hospitalization, Disabling, Other)
  Sender: FDA-Public Use
  Company Number: DK-PFIZER INC-2008044039

PATIENT
  Age: 45 Year
  Sex: Female
  Weight: 81 kg

DRUGS (5)
  1. SOLU-MEDROL [Suspect]
     Indication: CHRONIC OBSTRUCTIVE PULMONARY DISEASE
     Dosage: ONCE
     Route: 042
     Dates: start: 20080430, end: 20080430
  2. CHAMPIX [Concomitant]
     Route: 048
  3. PONDOCILLIN [Concomitant]
     Route: 048
  4. DOLOL [Concomitant]
     Route: 048
  5. BRICANYL [Concomitant]
     Route: 055

REACTIONS (3)
  - CARDIAC ARREST [None]
  - CEREBRAL INFARCTION [None]
  - CEREBRAL THROMBOSIS [None]
